FAERS Safety Report 8835609 (Version 2)
Quarter: 2012Q4

REPORT INFORMATION
  Report Type: 
  Country: BE (occurrence: BE)
  Receive Date: 20121011
  Receipt Date: 20121031
  Transmission Date: 20130627
  Serious: Yes (Death)
  Sender: FDA-Public Use
  Company Number: BE-JNJFOC-20121006343

PATIENT
  Age: 92 Year
  Sex: Male

DRUGS (3)
  1. XARELTO [Suspect]
     Indication: CEREBROVASCULAR ACCIDENT PROPHYLAXIS
     Route: 065
     Dates: start: 20120910, end: 20120927
  2. XARELTO [Suspect]
     Indication: ATRIAL FIBRILLATION
     Route: 065
     Dates: start: 20120910, end: 20120927
  3. ZYLORIC [Concomitant]
     Route: 065

REACTIONS (4)
  - Shock haemorrhagic [Fatal]
  - Anaemia [Fatal]
  - Haematuria [Unknown]
  - Haematuria [Unknown]
